FAERS Safety Report 22293569 (Version 2)
Quarter: 2023Q2

REPORT INFORMATION
  Report Type: Spontaneous
  Country: GB (occurrence: GB)
  Receive Date: 20230508
  Receipt Date: 20230523
  Transmission Date: 20230722
  Serious: Yes (Death, Life-Threatening, Other)
  Sender: FDA-Public Use
  Company Number: None

PATIENT
  Age: 13 Year
  Sex: Male
  Weight: 140 kg

DRUGS (30)
  1. DEXMEDETOMIDINE HYDROCHLORIDE [Suspect]
     Active Substance: DEXMEDETOMIDINE HYDROCHLORIDE
     Indication: Sedation
     Dosage: 2.7-4MG/DAY AS CONTINUOUS INFUSION
     Dates: start: 20220203
  2. ALFENTANIL [Concomitant]
     Active Substance: ALFENTANIL
  3. CHLORAL HYDRATE [Concomitant]
     Active Substance: CHLORAL HYDRATE
  4. COTRIMOXAZOLE [Concomitant]
     Active Substance: SULFAMETHOXAZOLE\TRIMETHOPRIM
  5. DEXAMETHASONE [Concomitant]
     Active Substance: DEXAMETHASONE
  6. ENOXAPARIN [Concomitant]
     Active Substance: ENOXAPARIN
  7. FENTANYL [Concomitant]
     Active Substance: FENTANYL
  8. FLUCONAZOLE [Concomitant]
     Active Substance: FLUCONAZOLE
  9. FUROSEMIDE [Concomitant]
     Active Substance: FUROSEMIDE
  10. GENTAMICIN [Concomitant]
     Active Substance: GENTAMICIN
  11. HEPARIN [Concomitant]
     Active Substance: HEPARIN SODIUM
  12. IBUPROFEN [Concomitant]
     Active Substance: IBUPROFEN
  13. KETAMINE [Concomitant]
     Active Substance: KETAMINE
  14. LACTULOSE [Concomitant]
     Active Substance: LACTULOSE
  15. POLYETHYLENE GLYCOL 3350\POTASSIUM CHLORIDE\SODIUM BICARBONATE\SODIUM [Concomitant]
     Active Substance: POLYETHYLENE GLYCOL 3350\POTASSIUM CHLORIDE\SODIUM BICARBONATE\SODIUM CHLORIDE
  16. MELATONIN [Concomitant]
     Active Substance: MELATONIN
  17. MEROPENEM [Concomitant]
     Active Substance: MEROPENEM
  18. METRONIDAZOLE [Concomitant]
     Active Substance: METRONIDAZOLE
  19. MIDAZOLAM [Concomitant]
     Active Substance: MIDAZOLAM
  20. MILRINONE [Concomitant]
     Active Substance: MILRINONE
  21. MORPHINE [Concomitant]
     Active Substance: MORPHINE
  22. NYSTATIN [Concomitant]
     Active Substance: NYSTATIN
  23. ACETAMINOPHEN [Concomitant]
     Active Substance: ACETAMINOPHEN
  24. PROPOFOL [Concomitant]
     Active Substance: PROPOFOL
  25. ROCURONIUM [Concomitant]
     Active Substance: ROCURONIUM BROMIDE
  26. SERTRALINE [Concomitant]
     Active Substance: SERTRALINE HYDROCHLORIDE
  27. SPIRONOLACTONE [Concomitant]
     Active Substance: SPIRONOLACTONE
  28. FERROUS SULFATE [Concomitant]
     Active Substance: FERROUS SULFATE
  29. VANCOMYCIN [Concomitant]
     Active Substance: VANCOMYCIN
  30. VITAMIN D NOS [Concomitant]
     Active Substance: VITAMIN D NOS

REACTIONS (3)
  - Renal failure [Not Recovered/Not Resolved]
  - Multiple organ dysfunction syndrome [Fatal]
  - Hyperpyrexia [Fatal]

NARRATIVE: CASE EVENT DATE: 20220211
